FAERS Safety Report 11309102 (Version 1)
Quarter: 2015Q3

REPORT INFORMATION
  Report Type: Report from Study
  Country: GB (occurrence: GB)
  Receive Date: 20150724
  Receipt Date: 20150724
  Transmission Date: 20151125
  Serious: Yes (Hospitalization, Other)
  Sender: FDA-Public Use
  Company Number: GB-AMGEN-GBRSL2015073155

PATIENT
  Age: 84 Year
  Sex: Female

DRUGS (1)
  1. PROLIA [Suspect]
     Active Substance: DENOSUMAB
     Indication: OSTEOPOROSIS
     Dosage: 60 MG, Q6MO
     Route: 058
     Dates: start: 20110915

REACTIONS (10)
  - Mobility decreased [Unknown]
  - Spinal fracture [Unknown]
  - Chest pain [Unknown]
  - Gallbladder disorder [Unknown]
  - Pneumothorax [Unknown]
  - Kyphosis [Unknown]
  - Biliary dilatation [Unknown]
  - Cholecystitis [Unknown]
  - Osteoporotic fracture [Unknown]
  - Back pain [Unknown]

NARRATIVE: CASE EVENT DATE: 201412
